FAERS Safety Report 7648253-0 (Version None)
Quarter: 2011Q3

REPORT INFORMATION
  Report Type: 
  Country: None (occurrence: None)
  Receive Date: 20110801
  Receipt Date: 20110726
  Transmission Date: 20111222
  Serious: Yes (Death, Life-Threatening, Other)
  Sender: FDA-Public Use
  Company Number: US-ASTRAZENECA-2011SE18059

PATIENT
  Age: 73 Year
  Sex: Female

DRUGS (1)
  1. NEXIUM [Suspect]
     Route: 048

REACTIONS (7)
  - BRONCHITIS [None]
  - POST PROCEDURAL COMPLICATION [None]
  - HAEMORRHAGE [None]
  - ASPIRATION [None]
  - CHRONIC OBSTRUCTIVE PULMONARY DISEASE [None]
  - GASTROOESOPHAGEAL REFLUX DISEASE [None]
  - CARDIAC ARREST [None]
